FAERS Safety Report 9535416 (Version 4)
Quarter: 2015Q2

REPORT INFORMATION
  Report Type: Spontaneous
  Country: US (occurrence: US)
  Receive Date: 20130918
  Receipt Date: 20150407
  Transmission Date: 20150821
  Serious: Yes (Hospitalization, Other)
  Sender: FDA-Public Use
  Company Number: US-009507513-1309USA005428

PATIENT
  Sex: Female

DRUGS (7)
  1. VITAMINS (UNSPECIFIED) [Concomitant]
     Active Substance: VITAMINS
     Dosage: UNK
     Dates: start: 1997, end: 2004
  2. BETOPTIC [Concomitant]
     Active Substance: BETAXOLOL HYDROCHLORIDE
     Indication: GLAUCOMA
     Dosage: UNK
     Route: 047
     Dates: start: 200010, end: 20071202
  3. FOSAMAX [Suspect]
     Active Substance: ALENDRONATE SODIUM
     Indication: OSTEOPENIA
     Dosage: 10 MG, UNK
     Route: 048
     Dates: start: 20010312, end: 20100331
  4. FOSAMAX [Suspect]
     Active Substance: ALENDRONATE SODIUM
     Indication: OSTEOPOROSIS
     Dosage: 70 MG, UNK
     Route: 048
     Dates: start: 20010312, end: 20100401
  5. COD LIVER OIL [Concomitant]
     Active Substance: COD LIVER OIL
     Dosage: UNK
     Dates: start: 1980
  6. TUMS ULTRA [Concomitant]
     Active Substance: CALCIUM CARBONATE
     Dosage: UNK
     Dates: start: 2001
  7. SYNTHROID [Concomitant]
     Active Substance: LEVOTHYROXINE SODIUM
     Indication: THYROID DISORDER
     Dosage: UNK
     Dates: start: 200004

REACTIONS (26)
  - Intramedullary rod insertion [Unknown]
  - Low turnover osteopathy [Unknown]
  - Localised infection [Unknown]
  - Infection [Unknown]
  - Migraine [Unknown]
  - Eyelid tumour [Unknown]
  - Adverse event [Not Recovered/Not Resolved]
  - Wrist fracture [Unknown]
  - Vitamin D deficiency [Unknown]
  - Blood cholesterol increased [Unknown]
  - Lower limb fracture [Unknown]
  - Hypertension [Unknown]
  - Pain [Unknown]
  - Arthralgia [Unknown]
  - Basal cell carcinoma [Unknown]
  - Inflammation [Unknown]
  - Gastrooesophageal reflux disease [Unknown]
  - Femur fracture [Recovered/Resolved]
  - Rotator cuff syndrome [Unknown]
  - Adverse event [Unknown]
  - Wound drainage [Unknown]
  - Radius fracture [Recovered/Resolved]
  - Exostosis [Unknown]
  - Depression [Unknown]
  - Nausea [Unknown]
  - Diarrhoea [Unknown]

NARRATIVE: CASE EVENT DATE: 20020725
